FAERS Safety Report 8543611-4 (Version None)
Quarter: 2012Q3

REPORT INFORMATION
  Report Type: 
  Country: None (occurrence: None)
  Receive Date: 20120727
  Receipt Date: 20120723
  Transmission Date: 20120928
  Serious: No
  Sender: FDA-Public Use
  Company Number: US-B.I. PHARMACEUTICALS,INC./RIDGEFIELD-2012-BP-16369BP

PATIENT
  Sex: Female
  Weight: 49 kg

DRUGS (8)
  1. LOVASTATIN [Concomitant]
     Indication: BLOOD CHOLESTEROL INCREASED
     Dosage: 20 MG
     Route: 048
  2. SPIRIVA [Suspect]
     Indication: DYSPNOEA
     Dosage: 18 MCG
     Route: 055
     Dates: start: 20110101
  3. VITAMIN E [Concomitant]
     Indication: DRY EYE
     Dosage: 400 MG
     Route: 048
  4. ALUBUTEROL SULFATE [Concomitant]
     Indication: POLLUTION
     Dates: start: 20110101
  5. ASPIRIN [Concomitant]
     Indication: ANTICOAGULANT THERAPY
     Dosage: 81 MG
     Route: 048
  6. METAPROLOL [Concomitant]
     Indication: HEART RATE
     Dosage: 50 MG
     Route: 048
  7. OMEPRAZOLE [Concomitant]
     Indication: HIATUS HERNIA
     Dosage: 20 MG
     Route: 048
  8. POLYETHYLENE GLYCOL [Concomitant]
     Indication: CONSTIPATION

REACTIONS (3)
  - DYSPNOEA [None]
  - WEIGHT DECREASED [None]
  - WEIGHT INCREASED [None]
